FAERS Safety Report 4840519-2 (Version None)
Quarter: 2005Q4

REPORT INFORMATION
  Report Type: 
  Country: None (occurrence: None)
  Receive Date: 20051130
  Receipt Date: 20050913
  Transmission Date: 20060501
  Serious: No
  Sender: FDA-Public Use
  Company Number: US-BRISTOL-MYERS SQUIBB COMPANY-13109202

PATIENT
  Age: 58 Year
  Sex: Male

DRUGS (2)
  1. ERBITUX [Suspect]
     Indication: COLORECTAL CANCER METASTATIC
     Route: 042
     Dates: start: 20050909, end: 20050909
  2. BENADRYL [Concomitant]
     Indication: PREMEDICATION
     Dates: start: 20050909, end: 20050909

REACTIONS (1)
  - BLOOD PRESSURE DECREASED [None]
